FAERS Safety Report 12632554 (Version 2)
Quarter: 2016Q3

REPORT INFORMATION
  Report Type: Spontaneous
  Country: US (occurrence: US)
  Receive Date: 20160808
  Receipt Date: 20160808
  Transmission Date: 20161109
  Serious: No
  Sender: FDA-Public Use
  Company Number: US-BEH-2015055966

PATIENT
  Sex: Female
  Weight: 85 kg

DRUGS (20)
  1. MORPHINE [Concomitant]
     Active Substance: MORPHINE
  2. ARMOUR THYROID [Concomitant]
     Active Substance: THYROID, PORCINE
  3. DEPLIN ALGAL OIL [Concomitant]
  4. TESTOSTERONE GEL [Concomitant]
     Active Substance: TESTOSTERONE
  5. OMEPRAZOLE. [Concomitant]
     Active Substance: OMEPRAZOLE
  6. PROGESTERONE. [Concomitant]
     Active Substance: PROGESTERONE
  7. BOTOX [Concomitant]
     Active Substance: ONABOTULINUMTOXINA
  8. DIPHENHYDRAMINE. [Concomitant]
     Active Substance: DIPHENHYDRAMINE
  9. HIZENTRA [Suspect]
     Active Substance: HUMAN IMMUNOGLOBULIN G
     Indication: MIGRAINE
     Route: 058
  10. VIVELLE-DOT [Concomitant]
     Active Substance: ESTRADIOL
  11. WELLBUTRIN SR [Concomitant]
     Active Substance: BUPROPION HYDROCHLORIDE
  12. PROAIR HFA [Concomitant]
     Active Substance: ALBUTEROL SULFATE
  13. ATENOLOL AND CHLORTHALIDONE [Concomitant]
     Active Substance: ATENOLOL\CHLORTHALIDONE
  14. LIDOCAINE/PRILOCAINE [Concomitant]
     Active Substance: LIDOCAINE\PRILOCAINE
  15. ACETAMINOPHEN. [Concomitant]
     Active Substance: ACETAMINOPHEN
  16. PROVIGIL [Concomitant]
     Active Substance: MODAFINIL
  17. EPIPEN [Concomitant]
     Active Substance: EPINEPHRINE
  18. DIAZEPAM. [Concomitant]
     Active Substance: DIAZEPAM
  19. PROMETRIUM [Concomitant]
     Active Substance: PROGESTERONE
  20. LIPITOR [Concomitant]
     Active Substance: ATORVASTATIN CALCIUM

REACTIONS (1)
  - Headache [Recovered/Resolved]
